FAERS Safety Report 4952984-0 (Version None)
Quarter: 2006Q1

REPORT INFORMATION
  Report Type: 
  Country: None (occurrence: None)
  Receive Date: 20060324
  Receipt Date: 20060313
  Transmission Date: 20060701
  Serious: Yes (Other)
  Sender: FDA-Public Use
  Company Number: JP-NOVOPROD-251580

PATIENT
  Age: 72 Year
  Sex: Male
  Weight: 55 kg

DRUGS (8)
  1. NOVORAPID CHU FLEXPEN [Suspect]
     Indication: INSULIN-REQUIRING TYPE II DIABETES MELLITUS
     Dosage: 17 IU, QD
     Route: 058
     Dates: start: 20040812
  2. ARTIST [Concomitant]
     Dosage: 10 MG, UNK
     Route: 048
  3. LENDORMIN [Concomitant]
     Dosage: .25 MG, QD
     Route: 048
  4. ALOSENN [Concomitant]
     Dosage: .5 G, QD
     Route: 048
  5. MUCODYNE [Concomitant]
     Dosage: 750 MG, QD
     Route: 048
     Dates: start: 20031226
  6. DASEN [Concomitant]
     Dosage: 30 MG, QD
     Route: 048
     Dates: start: 20031226
  7. KLACID UNO [Concomitant]
     Dosage: 400 MG, QD
     Route: 048
     Dates: start: 20031226
  8. ALESION [Concomitant]
     Dosage: 20 MG, UNK
     Route: 048
     Dates: start: 20031204, end: 20040205

REACTIONS (4)
  - BLOOD GLUCOSE INCREASED [None]
  - HYPOGLYCAEMIC COMA [None]
  - LOSS OF CONSCIOUSNESS [None]
  - SYNCOPE [None]
